FAERS Safety Report 6328590-2 (Version None)
Quarter: 2009Q3

REPORT INFORMATION
  Report Type: 
  Country: None (occurrence: None)
  Receive Date: 20090826
  Receipt Date: 20071113
  Transmission Date: 20100115
  Serious: Yes (Other)
  Sender: FDA-Public Use
  Company Number: US-ASTRAZENECA-2007UW05720

PATIENT
  Age: 644 Month
  Sex: Female
  Weight: 98 kg

DRUGS (47)
  1. SEROQUEL [Suspect]
     Indication: BIPOLAR DISORDER
     Dosage: 200-800MG
     Route: 048
     Dates: start: 20000101
  2. SEROQUEL [Suspect]
     Indication: DEPRESSION
     Dosage: 200-800MG
     Route: 048
     Dates: start: 20000101
  3. SEROQUEL [Suspect]
     Indication: GENERALISED ANXIETY DISORDER
     Dosage: 200-800MG
     Route: 048
     Dates: start: 20000101
  4. SEROQUEL [Suspect]
     Indication: BIPOLAR I DISORDER
     Dosage: 200-800MG
     Route: 048
     Dates: start: 20000101
  5. SEROQUEL [Suspect]
     Route: 048
     Dates: start: 20000101, end: 20051101
  6. SEROQUEL [Suspect]
     Route: 048
     Dates: start: 20000101, end: 20051101
  7. SEROQUEL [Suspect]
     Route: 048
     Dates: start: 20000101, end: 20051101
  8. SEROQUEL [Suspect]
     Route: 048
     Dates: start: 20000101, end: 20051101
  9. SEROQUEL [Suspect]
     Dosage: STRENGTH 100 MG, 200 MG, 300 MG, 400 MG, 600 MG.  DOSE 100 MG - 800 MG
     Route: 048
     Dates: start: 20000126
  10. SEROQUEL [Suspect]
     Dosage: STRENGTH 100 MG, 200 MG, 300 MG, 400 MG, 600 MG.  DOSE 100 MG - 800 MG
     Route: 048
     Dates: start: 20000126
  11. SEROQUEL [Suspect]
     Dosage: STRENGTH 100 MG, 200 MG, 300 MG, 400 MG, 600 MG.  DOSE 100 MG - 800 MG
     Route: 048
     Dates: start: 20000126
  12. SEROQUEL [Suspect]
     Dosage: STRENGTH 100 MG, 200 MG, 300 MG, 400 MG, 600 MG.  DOSE 100 MG - 800 MG
     Route: 048
     Dates: start: 20000126
  13. SEROQUEL [Suspect]
     Route: 048
     Dates: start: 20051201, end: 20060801
  14. SEROQUEL [Suspect]
     Route: 048
     Dates: start: 20051201, end: 20060801
  15. SEROQUEL [Suspect]
     Route: 048
     Dates: start: 20051201, end: 20060801
  16. SEROQUEL [Suspect]
     Route: 048
     Dates: start: 20051201, end: 20060801
  17. SEROQUEL [Suspect]
     Route: 048
     Dates: start: 20060301, end: 20060331
  18. SEROQUEL [Suspect]
     Route: 048
     Dates: start: 20060301, end: 20060331
  19. SEROQUEL [Suspect]
     Route: 048
     Dates: start: 20060301, end: 20060331
  20. SEROQUEL [Suspect]
     Route: 048
     Dates: start: 20060301, end: 20060331
  21. SEROQUEL [Suspect]
     Route: 048
     Dates: start: 20070701, end: 20070731
  22. SEROQUEL [Suspect]
     Route: 048
     Dates: start: 20070701, end: 20070731
  23. SEROQUEL [Suspect]
     Route: 048
     Dates: start: 20070701, end: 20070731
  24. SEROQUEL [Suspect]
     Route: 048
     Dates: start: 20070701, end: 20070731
  25. SEROQUEL [Suspect]
     Route: 048
     Dates: start: 20070702
  26. SEROQUEL [Suspect]
     Route: 048
     Dates: start: 20070702
  27. SEROQUEL [Suspect]
     Route: 048
     Dates: start: 20070702
  28. SEROQUEL [Suspect]
     Route: 048
     Dates: start: 20070702
  29. RISPERDAL [Concomitant]
     Route: 048
     Dates: start: 19900101, end: 20000101
  30. RISPERDAL [Concomitant]
     Dates: start: 19991127
  31. ACETAMINOPHEN [Concomitant]
     Dosage: 975 MG EVERY FOUR TO SIX HOURS AS NEEDED
     Route: 048
     Dates: start: 19980713
  32. TYLENOL (CAPLET) [Concomitant]
     Route: 048
     Dates: start: 20060713
  33. CLONAZEPAM [Concomitant]
     Indication: AGITATION
     Dosage: STRENGTH 1 MG, 2 MG   DOSE- 1 MG- 12 MG DAILY AS NEEDED
     Route: 048
     Dates: start: 19980712
  34. MOTRIN [Concomitant]
     Indication: PAIN
     Dosage: EVERY FOUR TO SIX HOURS AS NEEDED
     Route: 048
     Dates: start: 19980713
  35. NICOTINE [Concomitant]
     Indication: SMOKING CESSATION THERAPY
     Dates: start: 20010226
  36. ZESTRIL [Concomitant]
     Indication: BLOOD PRESSURE
     Dates: start: 20010302
  37. ZESTRIL [Concomitant]
     Indication: HYPERTENSION
     Dates: start: 20010302
  38. HALOPERIDOL [Concomitant]
     Dosage: EVERY FOUR HOURS AS NEEDED
     Route: 048
     Dates: start: 19980712
  39. REMERON [Concomitant]
     Dates: start: 19991130
  40. CELEXA [Concomitant]
     Dosage: STRENGTH 20 MG   DOSE- 10-20 MG AT NIGHT
     Dates: start: 19991207
  41. ALPRAZOLAM [Concomitant]
     Dates: start: 19991211
  42. AMBIEN [Concomitant]
     Dosage: STRENGTH 10 MG.  DOSE- 10- 20 MG AT NIGHT
     Route: 048
     Dates: start: 19991211
  43. LITHIUM CARBONATE [Concomitant]
     Dosage: STRENGTH 300 MG.  DOSE 300 MG - 1500 MG
     Route: 048
     Dates: start: 19991213
  44. CHLORPROMAZINE [Concomitant]
     Dates: start: 19991207
  45. TOPAMAX [Concomitant]
     Dates: start: 20010315
  46. CYMBALTA [Concomitant]
     Dates: start: 20061114
  47. HUMULIN R [Concomitant]
     Dosage: 70/30 VIAL
     Dates: start: 20010221

REACTIONS (5)
  - DIABETES MELLITUS INADEQUATE CONTROL [None]
  - DIABETIC NEUROPATHY [None]
  - NEUROPATHY PERIPHERAL [None]
  - TYPE 1 DIABETES MELLITUS [None]
  - TYPE 2 DIABETES MELLITUS [None]
